FAERS Safety Report 9907472 (Version 2)
Quarter: 2014Q1

REPORT INFORMATION
  Report Type: Spontaneous
  Country: US (occurrence: US)
  Receive Date: 20140218
  Receipt Date: 20140220
  Transmission Date: 20141002
  Serious: Yes (Hospitalization)
  Sender: FDA-Public Use
  Company Number: US-BAXTER-2014BAX007441

PATIENT
  Age: 45 Year
  Sex: Male

DRUGS (4)
  1. DIANEAL LOW CALCIUM [Suspect]
     Indication: PERITONEAL DIALYSIS
     Route: 033
     Dates: start: 20060407
  2. DIANEAL LOW CALCIUM [Suspect]
     Route: 033
     Dates: start: 20060407
  3. DIANEAL LOW CALCIUM [Suspect]
     Indication: PERITONEAL DIALYSIS
     Route: 033
     Dates: start: 20060407
  4. DIANEAL LOW CALCIUM [Suspect]
     Route: 033
     Dates: start: 20060407

REACTIONS (3)
  - Infection [Recovering/Resolving]
  - Renal cyst ruptured [Recovering/Resolving]
  - Abdominal pain [Recovering/Resolving]
